FAERS Safety Report 17604912 (Version 4)
Quarter: 2020Q3

REPORT INFORMATION
  Report Type: Report from Study
  Country: BR (occurrence: BR)
  Receive Date: 20200331
  Receipt Date: 20200707
  Transmission Date: 20201102
  Serious: Yes (Other)
  Sender: FDA-Public Use
  Company Number: NVSC2020BR007732

PATIENT
  Age: 70 Year
  Sex: Female
  Weight: 70 kg

DRUGS (5)
  1. COSENTYX [Suspect]
     Active Substance: SECUKINUMAB
     Indication: PSORIATIC ARTHROPATHY
     Dosage: 300 MG, QMO
     Route: 058
     Dates: start: 20191110
  2. COSENTYX [Suspect]
     Active Substance: SECUKINUMAB
     Dosage: 300 MG, QMO
     Route: 058
     Dates: start: 201911, end: 20200517
  3. COSENTYX [Suspect]
     Active Substance: SECUKINUMAB
     Dosage: UNK
     Route: 065
     Dates: start: 20190215
  4. COSENTYX [Suspect]
     Active Substance: SECUKINUMAB
     Dosage: 300 MG, QMO
     Route: 058
     Dates: end: 20200517
  5. COSENTYX [Suspect]
     Active Substance: SECUKINUMAB
     Indication: PSORIASIS
     Dosage: 300 MG/ML, QW,(DURING 5 WEEKS, AFTER MONTHLY)
     Route: 058
     Dates: start: 20191111, end: 20191209

REACTIONS (16)
  - Skin irritation [Recovering/Resolving]
  - Malaise [Not Recovered/Not Resolved]
  - Inappropriate schedule of product administration [Unknown]
  - Eye irritation [Unknown]
  - Hypersensitivity [Not Recovered/Not Resolved]
  - Post procedural complication [Unknown]
  - Psoriasis [Recovering/Resolving]
  - Rash erythematous [Unknown]
  - Human T-cell lymphotropic virus infection [Unknown]
  - Rhinitis allergic [Not Recovered/Not Resolved]
  - Pruritus [Recovering/Resolving]
  - Ear disorder [Not Recovered/Not Resolved]
  - Swelling face [Recovering/Resolving]
  - Scar [Unknown]
  - Irritability [Unknown]
  - Eye pruritus [Recovering/Resolving]

NARRATIVE: CASE EVENT DATE: 201912
